FAERS Safety Report 9538590 (Version 1)
Quarter: 2013Q3

REPORT INFORMATION
  Report Type: Spontaneous
  Country: IT (occurrence: IT)
  Receive Date: 20130920
  Receipt Date: 20130920
  Transmission Date: 20140515
  Serious: Yes (Other)
  Sender: FDA-Public Use
  Company Number: IT-ASTRAZENECA-2013SE69392

PATIENT
  Age: 25459 Day
  Sex: Female

DRUGS (6)
  1. SEROQUEL [Suspect]
     Route: 048
     Dates: start: 20130901, end: 20130901
  2. SEREUPIN [Suspect]
     Route: 048
     Dates: start: 20130901, end: 20130901
  3. DEPAKIN CHRONO [Suspect]
     Route: 048
     Dates: start: 20130901, end: 20130901
  4. CARBAMIDE [Suspect]
     Route: 065
  5. LASIX [Suspect]
     Route: 065
  6. SEQUACOR [Suspect]
     Route: 065

REACTIONS (4)
  - Sopor [Recovered/Resolved]
  - Renal impairment [Unknown]
  - Hepatic function abnormal [Unknown]
  - Wrong drug administered [Unknown]
